FAERS Safety Report 10205997 (Version 2)
Quarter: 2015Q1

REPORT INFORMATION
  Report Type: Report from Study
  Country: IE (occurrence: IE)
  Receive Date: 20140530
  Receipt Date: 20150303
  Transmission Date: 20150720
  Serious: Yes (Death)
  Sender: FDA-Public Use
  Company Number: IE-AMGEN-IRLSP2014039573

PATIENT
  Age: 81 Year
  Sex: Female

DRUGS (1)
  1. ARANESP [Suspect]
     Active Substance: DARBEPOETIN ALFA
     Indication: CHRONIC KIDNEY DISEASE
     Dosage: 30 MUG, Q5WK
     Route: 058
     Dates: start: 20130909

REACTIONS (2)
  - Intestinal infarction [Fatal]
  - Arteriosclerosis [Fatal]
